FAERS Safety Report 9226839 (Version 1)
Quarter: 2013Q2

REPORT INFORMATION
  Report Type: Report from Study
  Country: US (occurrence: US)
  Receive Date: 20130412
  Receipt Date: 20130412
  Transmission Date: 20140414
  Serious: Yes (Hospitalization)
  Sender: FDA-Public Use
  Company Number: US-JNJFOC-20130315178

PATIENT
  Age: 17 Year
  Sex: Female
  Weight: 65.5 kg

DRUGS (6)
  1. REMICADE [Suspect]
     Indication: CROHN^S DISEASE
     Route: 042
     Dates: start: 20110820
  2. MIRALAX [Concomitant]
     Route: 065
  3. PREVACID [Concomitant]
     Route: 065
  4. AZATHIOPRINE [Concomitant]
     Route: 065
  5. VITAMIN D [Concomitant]
     Route: 065
  6. ANTIBIOTICS FOR IBD [Concomitant]
     Route: 065

REACTIONS (1)
  - Crohn^s disease [Recovered/Resolved]
